FAERS Safety Report 6788800-4 (Version None)
Quarter: 2010Q2

REPORT INFORMATION
  Report Type: 
  Country: None (occurrence: None)
  Receive Date: 20100623
  Receipt Date: 20080729
  Transmission Date: 20101027
  Serious: No
  Sender: FDA-Public Use
  Company Number: US-PFIZER INC-2008021432

PATIENT
  Sex: Female
  Weight: 65.32 kg

DRUGS (9)
  1. AROMASIN [Suspect]
     Indication: BREAST CANCER
     Route: 048
     Dates: start: 20050501
  2. AMBIEN [Concomitant]
  3. ALEVE (CAPLET) [Concomitant]
  4. MULTI-VITAMINS [Concomitant]
  5. VITAMIN C [Concomitant]
  6. CALCIUM CARBONATE [Concomitant]
  7. ZINC [Concomitant]
  8. B-COMPLEX ^KRKA^ [Concomitant]
  9. VITAMIN E [Concomitant]

REACTIONS (3)
  - BREAST PAIN [None]
  - BREAST TENDERNESS [None]
  - DRUG EFFECT DECREASED [None]
